FAERS Safety Report 9987752 (Version 1)
Quarter: 2014Q1

REPORT INFORMATION
  Report Type: Spontaneous
  Country: CA (occurrence: CA)
  Receive Date: 20140307
  Receipt Date: 20140307
  Transmission Date: 20141002
  Serious: Yes (Other)
  Sender: FDA-Public Use
  Company Number: CA-GE HEALTHCARE MEDICAL DIAGNOSTICS-OMPQ-PR-1402S-0196

PATIENT
  Age: 58 Year
  Sex: Female
  Weight: 59.02 kg

DRUGS (2)
  1. OMNIPAQUE [Suspect]
     Indication: INVESTIGATION
     Route: 042
     Dates: start: 20140226, end: 20140226
  2. OMNIPAQUE [Suspect]
     Indication: DIAGNOSTIC PROCEDURE

REACTIONS (3)
  - Chest discomfort [Unknown]
  - Dyspnoea [Unknown]
  - Vomiting [Unknown]
